FAERS Safety Report 9214986 (Version 2)
Quarter: 2013Q2

REPORT INFORMATION
  Report Type: Report from Study
  Country: DE (occurrence: DE)
  Receive Date: 20130405
  Receipt Date: 20130528
  Transmission Date: 20140414
  Serious: Yes (Hospitalization, Other)
  Sender: FDA-Public Use
  Company Number: DE-INCYTE CORPORATION-2013IN000640

PATIENT
  Sex: Female

DRUGS (3)
  1. INCB018424 [Suspect]
     Indication: MYELOFIBROSIS
     Dosage: 15 MG, BID
     Route: 048
     Dates: start: 20121227, end: 20130211
  2. MARCUMAR [Concomitant]
     Dosage: UNK
     Dates: start: 20020801
  3. RAMIPRIL [Concomitant]
     Dosage: UNK
     Dates: start: 20071206

REACTIONS (1)
  - Haemolytic anaemia [Recovering/Resolving]
